FAERS Safety Report 5319269-4 (Version None)
Quarter: 2007Q2

REPORT INFORMATION
  Report Type: 
  Country: None (occurrence: None)
  Receive Date: 20070508
  Receipt Date: 20070501
  Transmission Date: 20071010
  Serious: Yes (Other)
  Sender: FDA-Public Use
  Company Number: PHEH2007US05378

PATIENT
  Age: 6 Year
  Sex: Male

DRUGS (1)
  1. ZELNORM [Suspect]
     Indication: IMPAIRED GASTRIC EMPTYING

REACTIONS (1)
  - GASTROINTESTINAL DISORDER [None]
